FAERS Safety Report 7565189-4 (Version None)
Quarter: 2011Q2

REPORT INFORMATION
  Report Type: 
  Country: None (occurrence: None)
  Receive Date: 20110622
  Receipt Date: 20080717
  Transmission Date: 20111010
  Serious: Yes (Death, Other)
  Sender: FDA-Public Use
  Company Number: PHHY2008DE37528

PATIENT
  Sex: Male
  Weight: 92 kg

DRUGS (17)
  1. NORPROLAC ^NOVARTIS^ [Concomitant]
  2. ASPIRIN [Concomitant]
  3. TORSEMIDE [Concomitant]
  4. FORMALDEHYDE SOLUTION [Concomitant]
  5. LEOREN [Concomitant]
  6. OXYBUTYNIN [Concomitant]
  7. FLUVASTATIN [Concomitant]
  8. ANOPROLIN [Concomitant]
  9. SANDOSTATIN LAR [Suspect]
     Indication: ACROMEGALY
     Dosage: 30 MG, UNK
     Route: 030
  10. EXFORGE [Concomitant]
  11. METOPROLOL TARTRATE [Concomitant]
  12. SPIRONOLACTONE [Concomitant]
  13. RAMIPRIL [Concomitant]
  14. CARBAMAZEPINE [Concomitant]
  15. PLAVIX [Concomitant]
  16. LEVOTHYROXINE SODIUM [Concomitant]
  17. LYRICA [Concomitant]

REACTIONS (4)
  - DYSPNOEA [None]
  - DEATH [None]
  - TRIGEMINAL NEURALGIA [None]
  - ASTHENIA [None]
